FAERS Safety Report 6769658-6 (Version None)
Quarter: 2010Q2

REPORT INFORMATION
  Report Type: 
  Country: None (occurrence: None)
  Receive Date: 20100615
  Receipt Date: 20100602
  Transmission Date: 20101027
  Serious: No
  Sender: FDA-Public Use
  Company Number: US-B.I. PHARMACEUTICALS,INC./RIDGEFIELD-2010-BP-05163BP

PATIENT
  Sex: Female

DRUGS (15)
  1. MICARDIS [Suspect]
     Indication: HYPERTENSION
     Dosage: 80 MG
     Route: 048
     Dates: start: 20100301
  2. MICARDIS [Suspect]
     Indication: ATRIAL FIBRILLATION
  3. MICARDIS [Suspect]
     Indication: SARCOIDOSIS
  4. MICARDIS [Suspect]
     Indication: CHRONIC OBSTRUCTIVE PULMONARY DISEASE
  5. MICARDIS [Suspect]
     Indication: HYPERSENSITIVITY
  6. LASIX [Concomitant]
     Indication: SWELLING
  7. LASIX [Concomitant]
     Indication: BLOOD PRESSURE
  8. COUMADIN [Concomitant]
     Indication: ANTICOAGULANT THERAPY
     Dosage: 3 MG
     Dates: start: 20040101
  9. DILTIAZEM [Concomitant]
  10. METOPROLOL TARTRATE [Concomitant]
  11. OMEPRAZOLE [Concomitant]
  12. SIMVASTATIN [Concomitant]
  13. XANAX [Concomitant]
  14. ALLEGRA [Concomitant]
  15. ISORBIDE MONATE [Concomitant]

REACTIONS (12)
  - ARTHRALGIA [None]
  - BACK PAIN [None]
  - CATARACT [None]
  - DYSPNOEA [None]
  - FEELING ABNORMAL [None]
  - HEART RATE DECREASED [None]
  - MICTURITION URGENCY [None]
  - MUSCLE SPASMS [None]
  - NAUSEA [None]
  - PAIN IN EXTREMITY [None]
  - RESPIRATORY RATE DECREASED [None]
  - VOMITING [None]
